FAERS Safety Report 7199142-X (Version None)
Quarter: 2010Q4

REPORT INFORMATION
  Report Type: 
  Country: None (occurrence: None)
  Receive Date: 20101214
  Receipt Date: 20101203
  Transmission Date: 20110411
  Serious: Yes (Other)
  Sender: FDA-Public Use
  Company Number: CRC-10-221

PATIENT
  Age: 34 Year
  Sex: Female

DRUGS (3)
  1. OXYCODONE HCL [Suspect]
     Indication: AUTOIMMUNE DISORDER
     Dosage: 1/2 TAB 4-5 TIMES DAILY
     Dates: start: 20101201
  2. OXYCODONE HCL [Suspect]
     Indication: INTERVERTEBRAL DISC PROTRUSION
     Dosage: 1/2 TAB 4-5 TIMES DAILY
     Dates: start: 20101201
  3. MOTRIN [Concomitant]

REACTIONS (5)
  - DIZZINESS [None]
  - HEPATIC PAIN [None]
  - PAIN IN EXTREMITY [None]
  - PRURITUS [None]
  - SOMNOLENCE [None]
